FAERS Safety Report 20223782 (Version 1)
Quarter: 2021Q4

REPORT INFORMATION
  Report Type: Spontaneous
  Country: NP (occurrence: NP)
  Receive Date: 20211223
  Receipt Date: 20211223
  Transmission Date: 20220303
  Serious: Yes (Death)
  Sender: FDA-Public Use
  Company Number: NP-PFIZER INC-202101807480

PATIENT
  Age: 46 Year
  Sex: Male

DRUGS (1)
  1. XALKORI [Suspect]
     Active Substance: CRIZOTINIB
     Indication: Non-small cell lung cancer
     Dosage: 250 MG, 2X/DAY

REACTIONS (1)
  - Death [Fatal]

NARRATIVE: CASE EVENT DATE: 20211109
